FAERS Safety Report 7597203-4 (Version None)
Quarter: 2011Q3

REPORT INFORMATION
  Report Type: 
  Country: None (occurrence: None)
  Receive Date: 20110708
  Receipt Date: 20100908
  Transmission Date: 20111222
  Serious: No
  Sender: FDA-Public Use
  Company Number: US-GLAXOSMITHKLINE-A0880287A

PATIENT
  Age: 54 Year
  Sex: Male

DRUGS (4)
  1. FLOVENT [Suspect]
     Indication: ASTHMA
     Dosage: 2PUFF TWICE PER DAY
     Route: 055
     Dates: start: 20091201, end: 20100301
  2. PREDNISONE [Suspect]
     Indication: BRONCHITIS
  3. VENTOLIN HFA [Concomitant]
  4. LORAZEPAM [Concomitant]

REACTIONS (1)
  - DRUG HYPERSENSITIVITY [None]
